FAERS Safety Report 7436585-0 (Version None)
Quarter: 2011Q2

REPORT INFORMATION
  Report Type: 
  Country: None (occurrence: None)
  Receive Date: 20110426
  Receipt Date: 20110411
  Transmission Date: 20111010
  Serious: Yes (Other)
  Sender: FDA-Public Use
  Company Number: CA-RANBAXY-2011RR-43813

PATIENT
  Age: 62 Year
  Sex: Female

DRUGS (19)
  1. GABAPENTIN [Suspect]
     Dosage: 2400 MG, QD
  2. GABAPENTIN [Suspect]
     Dosage: 100 MG, UNK
  3. HYDROXOCOBALAMIN [Concomitant]
  4. ESOMEPRAZOLE MAGNESIUM [Concomitant]
  5. GABAPENTIN [Suspect]
     Dosage: 400 MG, UNK
  6. PROGESTERONE [Concomitant]
  7. CYANOCOBALAMIN [Concomitant]
  8. SIBUTRAMINE HYDROCHLORIDE [Concomitant]
  9. CORTISONE [Concomitant]
  10. DICLOFENAC [Concomitant]
  11. INOXINE PRANOBEX [Concomitant]
  12. LIOTHYRONINE SODIUM [Concomitant]
  13. TRAMADOL HCL [Concomitant]
  14. THYROID TAB [Concomitant]
     Dosage: 30 MG, UNK
  15. GABAPENTIN [Suspect]
     Dosage: 600 MG, UNK
  16. GABAPENTIN [Suspect]
     Dosage: 800 MG, UNK
  17. BUPROPION [Concomitant]
  18. NORTRIPTYLINE [Concomitant]
  19. GABAPENTIN [Suspect]
     Dosage: 300 MG, UNK

REACTIONS (2)
  - VISION BLURRED [None]
  - PAPILLOEDEMA [None]
